FAERS Safety Report 11717926 (Version 4)
Quarter: 2016Q1

REPORT INFORMATION
  Report Type: Report from Study
  Country: US (occurrence: US)
  Receive Date: 20151110
  Receipt Date: 20160315
  Transmission Date: 20160525
  Serious: No
  Sender: FDA-Public Use
  Company Number: PHEH2015US006692

PATIENT
  Age: 22 Year
  Sex: Male

DRUGS (4)
  1. AFINITOR [Suspect]
     Active Substance: EVEROLIMUS
     Indication: ASTROCYTOMA, LOW GRADE
     Dosage: 10 MG, QD
     Route: 048
     Dates: start: 20150313
  2. FELBATOL [Concomitant]
     Active Substance: FELBAMATE
     Indication: PRODUCT USED FOR UNKNOWN INDICATION
     Route: 065
  3. AFINITOR [Suspect]
     Active Substance: EVEROLIMUS
     Indication: ANGIOMYOLIPOMA
     Dosage: 10 MG, QD
     Route: 048
     Dates: start: 20150628
  4. KEPPRA [Concomitant]
     Active Substance: LEVETIRACETAM
     Indication: PRODUCT USED FOR UNKNOWN INDICATION
     Route: 065

REACTIONS (11)
  - Vomiting [Unknown]
  - Headache [Recovered/Resolved]
  - Dyspnoea [Unknown]
  - Rhinorrhoea [Unknown]
  - Feeling hot [Unknown]
  - Cough [Unknown]
  - Pyrexia [Unknown]
  - Stress [Unknown]
  - Stomatitis [Recovered/Resolved]
  - Nasopharyngitis [Unknown]
  - Acne [Unknown]

NARRATIVE: CASE EVENT DATE: 20150403
